FAERS Safety Report 11317524 (Version 2)
Quarter: 2015Q3

REPORT INFORMATION
  Report Type: Spontaneous
  Country: US (occurrence: US)
  Receive Date: 20150728
  Receipt Date: 20150811
  Transmission Date: 20151125
  Serious: Yes (Hospitalization)
  Sender: FDA-Public Use
  Company Number: US-UNITED THERAPEUTICS-UNT-2015-008953

PATIENT
  Sex: Female

DRUGS (2)
  1. REMODULIN [Suspect]
     Active Substance: TREPROSTINIL
     Indication: PULMONARY ARTERIAL HYPERTENSION
     Dosage: 0.00675 ?G/KG, CONTINUING
     Route: 058
     Dates: start: 20141218
  2. REMODULIN [Suspect]
     Active Substance: TREPROSTINIL
     Dosage: 0.00645 ?G/KG, CONTINUING
     Route: 058
     Dates: start: 20150225

REACTIONS (2)
  - Pleural effusion [Recovered/Resolved]
  - Gait disturbance [Recovered/Resolved]

NARRATIVE: CASE EVENT DATE: 20150720
